FAERS Safety Report 9748395 (Version 1)
Quarter: 2013Q4

REPORT INFORMATION
  Report Type: Spontaneous
  Country: US (occurrence: None)
  Receive Date: 20131206
  Receipt Date: 20131206
  Transmission Date: 20140711
  Serious: Yes (Hospitalization)
  Sender: FDA-Public Use
  Company Number: None

PATIENT
  Age: 83 Year
  Sex: Male
  Weight: 65.5 kg

DRUGS (4)
  1. RITUXIMAB (MOAB C2B8 ANTI CD20, CHIMERIC) [Suspect]
  2. LENALIDOMIDE [Suspect]
  3. ACYCLOVIR [Concomitant]
  4. BACTRIM [Concomitant]

REACTIONS (9)
  - Thrombocytopenia [None]
  - Anaemia [None]
  - Renal failure [None]
  - Decreased appetite [None]
  - Fatigue [None]
  - Malaise [None]
  - Asthenia [None]
  - Hypotension [None]
  - Pneumonia [None]
